FAERS Safety Report 7291139-4 (Version None)
Quarter: 2011Q1

REPORT INFORMATION
  Report Type: 
  Country: None (occurrence: None)
  Receive Date: 20110214
  Receipt Date: 20110209
  Transmission Date: 20110831
  Serious: Yes (Other)
  Sender: FDA-Public Use
  Company Number: FR-ABBOTT-11P-056-0703990-00

PATIENT
  Sex: Female

DRUGS (2)
  1. HUMIRA [Suspect]
     Indication: CROHN'S DISEASE
     Dosage: TWO INJECTIONS
     Route: 058
     Dates: start: 20100301, end: 20100301
  2. FIVASA [Concomitant]
     Indication: PRODUCT USED FOR UNKNOWN INDICATION

REACTIONS (7)
  - PARAESTHESIA [None]
  - ARTHRALGIA [None]
  - CHEST PAIN [None]
  - SMALL INTESTINAL RESECTION [None]
  - MYALGIA [None]
  - DYSPNOEA [None]
  - CYTOLYTIC HEPATITIS [None]
